FAERS Safety Report 5776441-7 (Version None)
Quarter: 2008Q2

REPORT INFORMATION
  Report Type: 
  Country: None (occurrence: None)
  Receive Date: 20080618
  Receipt Date: 20080610
  Transmission Date: 20081010
  Serious: Yes (Death)
  Sender: FDA-Public Use
  Company Number: JP-BAYER-200810994BYL

PATIENT
  Age: 54 Year
  Sex: Male
  Weight: 59 kg

DRUGS (5)
  1. NEXAVAR [Suspect]
     Indication: RENAL CELL CARCINOMA STAGE IV
     Dosage: TOTAL DAILY DOSE: 800 MG  UNIT DOSE: 200 MG
     Route: 048
     Dates: start: 20080418, end: 20080513
  2. DUROTEP PATCH [Concomitant]
     Dosage: TOTAL DAILY DOSE: 5 MG  UNIT DOSE: 5 MG
     Route: 062
     Dates: start: 20080418, end: 20080514
  3. DECADRON [Concomitant]
     Route: 048
     Dates: start: 20080418, end: 20080514
  4. MOBIC [Concomitant]
     Dosage: AS USED: 10 MG
     Route: 048
     Dates: start: 20080418, end: 20080514
  5. ZOMETA [Concomitant]
     Indication: HYPERCALCAEMIA

REACTIONS (21)
  - APHTHOUS STOMATITIS [None]
  - BACTERIAL INFECTION [None]
  - BLOOD PRESSURE DECREASED [None]
  - CARDIO-RESPIRATORY ARREST [None]
  - CHEST PAIN [None]
  - CULTURE POSITIVE [None]
  - ENTEROBACTER INFECTION [None]
  - HYPERCALCAEMIA [None]
  - LUNG INFECTION [None]
  - MALIGNANT NEOPLASM PROGRESSION [None]
  - METASTASES TO BONE [None]
  - METASTASES TO LUNG [None]
  - OXYGEN SATURATION DECREASED [None]
  - PNEUMOTHORAX [None]
  - PRURITUS [None]
  - PYOTHORAX [None]
  - SEPSIS [None]
  - SEPTIC SHOCK [None]
  - SKIN REACTION [None]
  - STOMATITIS [None]
  - STREPTOCOCCAL INFECTION [None]
